FAERS Safety Report 23333475 (Version 1)
Quarter: 2023Q4

REPORT INFORMATION
  Report Type: Report from Study
  Country: US (occurrence: US)
  Receive Date: 20231222
  Receipt Date: 20231222
  Transmission Date: 20240109
  Serious: Yes (Life-Threatening, Hospitalization)
  Sender: FDA-Public Use
  Company Number: US-MALLINCKRODT-MNK202305924

PATIENT
  Age: 8 Month
  Sex: Female
  Weight: 7 kg

DRUGS (4)
  1. CORTICOTROPIN [Suspect]
     Active Substance: CORTICOTROPIN
     Indication: Infantile spasms
     Dosage: 26.4 UNITS
     Route: 030
     Dates: start: 20231115, end: 2023
  2. CORTICOTROPIN [Suspect]
     Active Substance: CORTICOTROPIN
     Dosage: UNKNOWN, WEANING DOSE
     Dates: start: 2023
  3. VIGABATRIN [Concomitant]
     Active Substance: VIGABATRIN
     Indication: Product used for unknown indication
     Dosage: UNKNOWN
  4. GABAPENTIN [Concomitant]
     Active Substance: GABAPENTIN
     Indication: Seizure
     Dosage: UNKNOWN

REACTIONS (5)
  - Bacterial infection [Recovering/Resolving]
  - Agitation [Unknown]
  - Respiratory rate increased [Unknown]
  - Poor quality sleep [Unknown]
  - Blood pressure increased [Unknown]

NARRATIVE: CASE EVENT DATE: 20230101
